FAERS Safety Report 22377629 (Version 1)
Quarter: 2023Q2

REPORT INFORMATION
  Report Type: Spontaneous
  Country: TW (occurrence: TW)
  Receive Date: 20230529
  Receipt Date: 20230529
  Transmission Date: 20230722
  Serious: Yes (Death, Hospitalization, Other)
  Sender: FDA-Public Use
  Company Number: TW-CELLTRION INC.-2023TW011051

PATIENT

DRUGS (2)
  1. RITUXIMAB [Suspect]
     Active Substance: RITUXIMAB
     Indication: Sjogren^s syndrome
     Dosage: TWO DOSES OF RTX 500 MG 2 WEEKS APART
  2. PREDNISOLONE [Concomitant]
     Active Substance: PREDNISOLONE
     Indication: Sjogren^s syndrome
     Dosage: 20?30 MG DAILY FOR 12 WEEKS

REACTIONS (2)
  - Pneumocystis jirovecii pneumonia [Fatal]
  - Intentional product use issue [Unknown]
